FAERS Safety Report 14636612 (Version 1)
Quarter: 2018Q1

REPORT INFORMATION
  Report Type: Spontaneous
  Country: US (occurrence: US)
  Receive Date: 20180313
  Receipt Date: 20180313
  Transmission Date: 20180509
  Serious: No
  Sender: FDA-Public Use
  Company Number: None

PATIENT
  Age: 71 Year
  Sex: Female

DRUGS (2)
  1. COSENTYX [Suspect]
     Active Substance: SECUKINUMAB
     Indication: PSORIASIS
     Dosage: ?          OTHER FREQUENCY:ONCE A WEEK FOR 5;?
     Route: 030
     Dates: start: 20171217, end: 20180131
  2. COSENTYX [Suspect]
     Active Substance: SECUKINUMAB
     Indication: PSORIATIC ARTHROPATHY
     Dosage: ?          OTHER FREQUENCY:ONCE A WEEK FOR 5;?
     Route: 030
     Dates: start: 20171217, end: 20180131

REACTIONS (4)
  - Pain in extremity [None]
  - Rash pustular [None]
  - Pain [None]
  - Condition aggravated [None]

NARRATIVE: CASE EVENT DATE: 20180131
